FAERS Safety Report 20482177 (Version 2)
Quarter: 2022Q3

REPORT INFORMATION
  Report Type: Spontaneous
  Country: FR (occurrence: FR)
  Receive Date: 20220216
  Receipt Date: 20220721
  Transmission Date: 20221026
  Serious: Yes (Death, Hospitalization)
  Sender: FDA-Public Use
  Company Number: None

PATIENT
  Age: 81 Year
  Sex: Female

DRUGS (2)
  1. XARELTO [Interacting]
     Active Substance: RIVAROXABAN
     Indication: Product prescribing error
     Dosage: 15 MG, BID
     Route: 048
     Dates: start: 20210626, end: 20210628
  2. ARIXTRA [Interacting]
     Active Substance: FONDAPARINUX SODIUM
     Indication: Product prescribing error
     Dosage: 7.5 MG, QD
     Route: 058
     Dates: start: 20210625, end: 20210628

REACTIONS (5)
  - Cerebral haemorrhage [Fatal]
  - Accidental overdose [Fatal]
  - Product prescribing error [Fatal]
  - Product prescribing error [Fatal]
  - Drug interaction [Fatal]

NARRATIVE: CASE EVENT DATE: 20210626
